FAERS Safety Report 10258281 (Version 1)
Quarter: 2014Q2

REPORT INFORMATION
  Report Type: Spontaneous
  Country: US (occurrence: None)
  Receive Date: 20140623
  Receipt Date: 20140623
  Transmission Date: 20141212
  Serious: Yes (Other)
  Sender: FDA-Public Use
  Company Number: None

PATIENT
  Age: 49 Year
  Sex: Female

DRUGS (1)
  1. PIRMELLA 1/35 [Suspect]
     Dosage: 1 PILL, QD, ORAL
     Route: 048

REACTIONS (3)
  - Pain [None]
  - Muscle spasms [None]
  - Unevaluable event [None]
